FAERS Safety Report 17596706 (Version 1)
Quarter: 2020Q1

REPORT INFORMATION
  Report Type: Other
  Country: CA (occurrence: CA)
  Receive Date: 20200330
  Receipt Date: 20200330
  Transmission Date: 20200409
  Serious: Yes (Other)
  Sender: FDA-Public Use
  Company Number: CA-APOTEX-2020AP009212

PATIENT
  Age: 65 Year
  Sex: Female

DRUGS (1)
  1. APO-OMEPRAZOLE [Suspect]
     Active Substance: OMEPRAZOLE
     Indication: PEPTIC ULCER
     Dosage: 20 MG, BID
     Route: 065

REACTIONS (2)
  - Melaena [Unknown]
  - Product substitution issue [Unknown]
